FAERS Safety Report 11244915 (Version 1)
Quarter: 2015Q3

REPORT INFORMATION
  Report Type: Spontaneous
  Country: CH (occurrence: CH)
  Receive Date: 20150707
  Receipt Date: 20150707
  Transmission Date: 20151125
  Serious: Yes (Other)
  Sender: FDA-Public Use
  Company Number: CH-ACTAVIS-2015-13736

PATIENT
  Age: 54 Year
  Sex: Male

DRUGS (7)
  1. PIPAMPERONE [Suspect]
     Active Substance: PIPAMPERONE
     Indication: DELIRIUM
     Dosage: 20 MG, QHS
     Route: 048
  2. KETAMINE (UNKNOWN) [Suspect]
     Active Substance: KETAMINE
     Indication: SEDATIVE THERAPY
     Dosage: UNK
     Route: 065
  3. PROPOFOL. [Suspect]
     Active Substance: PROPOFOL
     Indication: SEDATIVE THERAPY
     Dosage: UNK
     Route: 065
  4. PHYSOSTIGMINE [Concomitant]
     Active Substance: PHYSOSTIGMINE
     Indication: DELIRIUM
     Dosage: 2 MG, SINGLE
     Route: 042
  5. FENTANYL (UNKNOWN) [Suspect]
     Active Substance: FENTANYL
     Indication: ANALGESIC THERAPY
     Dosage: UNK
     Route: 065
  6. RISPERIDONE (UNKNOWN) [Suspect]
     Active Substance: RISPERIDONE
     Indication: DELIRIUM
     Dosage: 0.5 MG, QHS
     Route: 048
  7. BIPERIDEN [Suspect]
     Active Substance: BIPERIDEN
     Indication: EXTRAPYRAMIDAL DISORDER
     Dosage: 5 MG, DAILY
     Route: 042

REACTIONS (2)
  - Delirium [Recovered/Resolved]
  - Extrapyramidal disorder [Unknown]
